FAERS Safety Report 13448705 (Version 2)
Quarter: 2017Q2

REPORT INFORMATION
  Report Type: Spontaneous
  Country: DE (occurrence: DE)
  Receive Date: 20170417
  Receipt Date: 20170505
  Transmission Date: 20170830
  Serious: Yes (Hospitalization)
  Sender: FDA-Public Use
  Company Number: DE-TEVA-757735GER

PATIENT
  Age: 48 Year
  Sex: Female
  Weight: 120 kg

DRUGS (7)
  1. OXYCODON-HCL-RATIOPHARM 10 MG RETARDTABLETTEN [Suspect]
     Active Substance: OXYCODONE HYDROCHLORIDE
     Indication: PAIN
     Dosage: 20 MILLIGRAM DAILY;
     Route: 048
     Dates: end: 201703
  2. PROMETHAZIN GTT. [Concomitant]
     Indication: MENTAL DISORDER
  3. PANTOPRAZOL KAPSELN [Concomitant]
     Dosage: 20 MILLIGRAM DAILY;
     Route: 048
  4. OXYCODON-HCL-RATIOPHARM 10 MG RETARDTABLETTEN [Interacting]
     Active Substance: OXYCODONE HYDROCHLORIDE
     Dosage: 10 MILLIGRAM DAILY;
     Route: 048
     Dates: start: 20170313, end: 20170320
  5. DABIGATRAN KAPSELN [Concomitant]
     Indication: DEEP VEIN THROMBOSIS
     Dosage: 220 MILLIGRAM DAILY;
     Route: 048
  6. FLUPENTIXOL GTT. [Interacting]
     Active Substance: FLUPENTIXOL
     Indication: SCHIZOPHRENIA
     Dosage: 4 MILLIGRAM DAILY;
     Route: 048
  7. PROMETHAZIN GTT. [Concomitant]
     Indication: RESTLESSNESS
     Dosage: 75 MILLIGRAM DAILY; SLOW DECREASE IN DOSAGE UNTIL 0 MG
     Route: 048
     Dates: start: 20170310, end: 20170315

REACTIONS (7)
  - Illusion [Recovered/Resolved]
  - Visual impairment [Recovered/Resolved]
  - Fear of falling [Unknown]
  - Confusional state [Unknown]
  - Drug interaction [Unknown]
  - Gait disturbance [Recovered/Resolved]
  - Fear [Unknown]

NARRATIVE: CASE EVENT DATE: 201703
